FAERS Safety Report 21355368 (Version 1)
Quarter: 2022Q3

REPORT INFORMATION
  Report Type: Spontaneous
  Country: US (occurrence: None)
  Receive Date: 20220919
  Receipt Date: 20220919
  Transmission Date: 20221027
  Serious: No
  Sender: FDA-Public Use
  Company Number: None

PATIENT
  Age: 27 Year
  Sex: Female
  Weight: 89.81 kg

DRUGS (1)
  1. INFLECTRA [Suspect]
     Active Substance: INFLIXIMAB-DYYB
     Indication: Crohn^s disease
     Dosage: FREQUENCY : AS DIRECTED;?INFUSE 430MG INTRAVENOUSLY AT WEEKS 0, 2 AND 6 AS DIRECTED.?
     Route: 042
     Dates: start: 202107

REACTIONS (1)
  - Tuberculosis [None]
